FAERS Safety Report 4950553-X (Version None)
Quarter: 2006Q1

REPORT INFORMATION
  Report Type: 
  Country: None (occurrence: None)
  Receive Date: 20060321
  Receipt Date: 20060321
  Transmission Date: 20060701
  Serious: Yes (Hospitalization)
  Sender: FDA-Public Use
  Company Number: None

PATIENT
  Age: 25 Year
  Sex: Male

DRUGS (13)
  1. DEPAKOTE ER [Suspect]
     Indication: PSYCHOTIC DISORDER
     Dosage: 2000 MG QHS PO
     Route: 048
     Dates: start: 20051216, end: 20051229
  2. RISPERDAL [Concomitant]
  3. MIRALAX [Concomitant]
  4. COLACE [Concomitant]
  5. TYLENOL (CAPLET) [Concomitant]
  6. HALDOL [Concomitant]
  7. ATIVAN [Concomitant]
  8. BENADRYL [Concomitant]
  9. HALDOL [Concomitant]
  10. ATIVAN [Concomitant]
  11. BENADRYL [Concomitant]
  12. MAALOX PLUS [Concomitant]
  13. MILK OF MAGNESIA TAB [Concomitant]

REACTIONS (1)
  - PANCREATITIS [None]
